FAERS Safety Report 17072357 (Version 1)
Quarter: 2019Q4

REPORT INFORMATION
  Report Type: Spontaneous
  Country: GR (occurrence: GR)
  Receive Date: 20191125
  Receipt Date: 20191125
  Transmission Date: 20200122
  Serious: Yes (Hospitalization)
  Sender: FDA-Public Use
  Company Number: GR-PFIZER INC-2019501840

PATIENT
  Age: 47 Year
  Sex: Male

DRUGS (2)
  1. INFLIXIMAB [Suspect]
     Active Substance: INFLIXIMAB
     Indication: RHEUMATOID ARTHRITIS
     Dosage: UNK
     Route: 065
  2. METHOTREXATE SODIUM. [Suspect]
     Active Substance: METHOTREXATE SODIUM
     Indication: RHEUMATOID ARTHRITIS
     Dosage: UNK
     Route: 065

REACTIONS (11)
  - Platelet count decreased [Unknown]
  - Visceral leishmaniasis [Unknown]
  - Myalgia [Recovered/Resolved]
  - Haematocrit decreased [Unknown]
  - Coagulation time prolonged [Unknown]
  - Headache [Recovered/Resolved]
  - Hepatomegaly [Unknown]
  - Pyrexia [Recovered/Resolved]
  - Hypofibrinogenaemia [Unknown]
  - Inflammation [Unknown]
  - Hyperhidrosis [Recovered/Resolved]
